FAERS Safety Report 7944295 (Version 6)
Quarter: 2013Q3

REPORT INFORMATION
  Report Type: Spontaneous
  Country: FR (occurrence: FR)
  Receive Date: 20110513
  Receipt Date: 20130801
  Transmission Date: 20140515
  Serious: Yes (Hospitalization, Other)
  Sender: FDA-Public Use
  Company Number: FR-JNJFOC-20110502735

PATIENT
  Age: 65 Year
  Sex: Female
  Weight: 78 kg

DRUGS (6)
  1. RISPERDAL CONSTA [Suspect]
     Indication: SCHIZOPHRENIA
     Route: 030
  2. RISPERDAL CONSTA [Suspect]
     Indication: SCHIZOPHRENIA
     Route: 030
  3. RISPERDAL CONSTA [Suspect]
     Indication: SCHIZOPHRENIA
     Route: 030
     Dates: start: 20130620
  4. RISPERDAL CONSTA [Suspect]
     Indication: SCHIZOPHRENIA
     Route: 030
     Dates: start: 20110712
  5. HALDOL [Suspect]
     Indication: PRODUCT USED FOR UNKNOWN INDICATION
     Route: 065
  6. RIVOTRIL [Concomitant]
     Indication: PRODUCT USED FOR UNKNOWN INDICATION
     Route: 065

REACTIONS (24)
  - Cardiac murmur [Unknown]
  - Hospitalisation [Recovered/Resolved]
  - Delirium [Unknown]
  - Weight increased [Not Recovered/Not Resolved]
  - Eye disorder [Unknown]
  - Angina pectoris [Unknown]
  - Humerus fracture [Unknown]
  - Breast enlargement [Unknown]
  - Hypotension [Unknown]
  - Headache [Unknown]
  - Incorrect route of drug administration [Unknown]
  - Incoherent [Unknown]
  - Muscle rigidity [Unknown]
  - Tachycardia [Unknown]
  - Asthenia [Unknown]
  - Torticollis [Unknown]
  - Myalgia [Unknown]
  - Rash [Unknown]
  - Visual acuity reduced [Unknown]
  - Fatigue [Unknown]
  - Prescribed overdose [Unknown]
  - Renal pain [Unknown]
  - Oedema peripheral [Unknown]
  - Malaise [Unknown]
